FAERS Safety Report 4862871-4 (Version None)
Quarter: 2005Q4

REPORT INFORMATION
  Report Type: 
  Country: None (occurrence: None)
  Receive Date: 20051221
  Receipt Date: 20051209
  Transmission Date: 20060501
  Serious: Yes (Hospitalization)
  Sender: FDA-Public Use
  Company Number: FR-SANOFI-SYNTHELABO-A02200503241

PATIENT
  Age: 38 Year
  Sex: Male
  Weight: 87 kg

DRUGS (12)
  1. STILNOX [Suspect]
     Indication: DRUG USE FOR UNKNOWN INDICATION
     Dosage: 10 MG
     Route: 048
     Dates: start: 20050101, end: 20050101
  2. TERCIAN [Suspect]
     Indication: DRUG USE FOR UNKNOWN INDICATION
     Dosage: 50 MG
     Route: 048
     Dates: start: 20050101
  3. VASTAREL [Suspect]
     Indication: DRUG USE FOR UNKNOWN INDICATION
     Dosage: 35 MG
     Route: 048
     Dates: start: 20050101
  4. ZYPREXA [Suspect]
     Indication: DRUG USE FOR UNKNOWN INDICATION
     Dosage: UNK
     Route: 048
     Dates: end: 20050101
  5. NEXIUM [Suspect]
     Indication: DRUG USE FOR UNKNOWN INDICATION
     Dosage: 20 MG
     Route: 048
     Dates: start: 20050101
  6. SEROPLEX [Suspect]
     Indication: DRUG USE FOR UNKNOWN INDICATION
     Dosage: UNK
     Route: 048
     Dates: end: 20050101
  7. XANAX [Concomitant]
     Indication: DRUG USE FOR UNKNOWN INDICATION
     Dosage: UNK
     Route: 048
     Dates: end: 20050101
  8. CORTANCYL [Concomitant]
     Indication: DRUG USE FOR UNKNOWN INDICATION
     Dosage: UNK
     Route: 048
     Dates: start: 20050101, end: 20050101
  9. VICTAN [Concomitant]
     Indication: DRUG USE FOR UNKNOWN INDICATION
     Dosage: UNK
     Route: 048
     Dates: start: 20050101
  10. TRAMADOL HCL [Concomitant]
     Indication: PAIN
     Dosage: UNK
     Route: 065
     Dates: start: 20050101
  11. LAROXYL [Concomitant]
     Indication: DRUG USE FOR UNKNOWN INDICATION
     Dosage: UNK
     Route: 065
  12. SULFARLEM [Concomitant]
     Dosage: UNK
     Route: 048
     Dates: start: 20050101

REACTIONS (5)
  - ARTERIAL THROMBOSIS [None]
  - BLOOD CHOLESTEROL INCREASED [None]
  - BLOOD TRIGLYCERIDES INCREASED [None]
  - DYSLIPIDAEMIA [None]
  - PULMONARY EMBOLISM [None]
